FAERS Safety Report 5587787-X (Version None)
Quarter: 2008Q1

REPORT INFORMATION
  Report Type: 
  Country: None (occurrence: None)
  Receive Date: 20080108
  Receipt Date: 20071227
  Transmission Date: 20080703
  Serious: Yes (Death, Hospitalization)
  Sender: FDA-Public Use
  Company Number: 2007S1012668

PATIENT
  Age: 74 Year
  Sex: Male
  Weight: 55.9 kg

DRUGS (3)
  1. HUMIRA [Suspect]
     Indication: RHEUMATOID ARTHRITIS
     Dosage: 0.8 ML; SUBCUTANEOUS
     Route: 058
     Dates: start: 20070822, end: 20071017
  2. METHOTREXATE [Suspect]
     Indication: RHEUMATOID ARTHRITIS
     Dosage: 20 MG;WEEKLY;ORAL
     Route: 048
     Dates: start: 20070822, end: 20071017
  3. FOLIC ACID [Concomitant]

REACTIONS (2)
  - ANXIETY [None]
  - PHARYNGITIS [None]
